FAERS Safety Report 15487552 (Version 1)
Quarter: 2018Q4

REPORT INFORMATION
  Report Type: Spontaneous
  Country: US (occurrence: US)
  Receive Date: 20181011
  Receipt Date: 20181011
  Transmission Date: 20190205
  Serious: Yes (Disabling, Other)
  Sender: FDA-Public Use
  Company Number: US-JNJFOC-20181012049

PATIENT
  Age: 49 Year
  Sex: Male

DRUGS (1)
  1. INVOKANA [Suspect]
     Active Substance: CANAGLIFLOZIN
     Indication: TYPE 2 DIABETES MELLITUS
     Route: 048
     Dates: start: 20160421

REACTIONS (6)
  - Osteomyelitis [Unknown]
  - Diabetes mellitus inadequate control [Unknown]
  - Acute kidney injury [Recovered/Resolved]
  - Leg amputation [Unknown]
  - Sepsis [Recovered/Resolved]
  - Gas gangrene [Unknown]

NARRATIVE: CASE EVENT DATE: 20160616
